FAERS Safety Report 8897494 (Version 1)
Quarter: 2012Q4

REPORT INFORMATION
  Report Type: 
  Country: US (occurrence: US)
  Receive Date: 20121108
  Receipt Date: 20121108
  Transmission Date: 20130627
  Serious: No
  Sender: FDA-Public Use
  Company Number: US-AMGEN-USASP2012012090

PATIENT
  Age: 59 Year
  Sex: Female
  Weight: 55.78 kg

DRUGS (8)
  1. ENBREL [Suspect]
     Indication: RHEUMATOID ARTHRITIS
     Dosage: 50 mg, qwk
     Route: 058
  2. NORVASC [Concomitant]
     Dosage: 2.5 mg, UNK
     Route: 048
  3. NORVIR [Concomitant]
     Dosage: 100 mg, UNK
     Route: 048
  4. NYSTATIN [Concomitant]
  5. FOLIC ACID [Concomitant]
     Dosage: 1 mg, UNK
     Route: 048
  6. PREVACID [Concomitant]
     Dosage: 30 mg, UNK
     Route: 048
  7. LORTAB                             /00607101/ [Concomitant]
     Route: 048
  8. ZIAC [Concomitant]
     Route: 048

REACTIONS (3)
  - Psoriasis [Unknown]
  - Oral herpes [Unknown]
  - Oral candidiasis [Unknown]
